FAERS Safety Report 4691051-0 (Version None)
Quarter: 2005Q2

REPORT INFORMATION
  Report Type: 
  Country: None (occurrence: None)
  Receive Date: 20050615
  Receipt Date: 20050606
  Transmission Date: 20051028
  Serious: Yes (Other)
  Sender: FDA-Public Use
  Company Number: 2005UW08704

PATIENT
  Age: 39 Year
  Sex: Male
  Weight: 86.2 kg

DRUGS (4)
  1. SEROQUEL [Suspect]
     Indication: BIPOLAR DISORDER
     Route: 048
     Dates: start: 20050101
  2. SEROQUEL [Suspect]
     Indication: SCHIZOPHRENIA
     Route: 048
     Dates: start: 20050101
  3. AMBIEN [Concomitant]
  4. BIPOLAR DISORDER MEDICINE [Concomitant]
     Indication: BIPOLAR DISORDER

REACTIONS (3)
  - DYSPHAGIA [None]
  - NASOPHARYNGEAL DISORDER [None]
  - PARALYSIS [None]
